FAERS Safety Report 7550964-2 (Version None)
Quarter: 2011Q2

REPORT INFORMATION
  Report Type: 
  Country: None (occurrence: None)
  Receive Date: 20110616
  Receipt Date: 20110611
  Transmission Date: 20111010
  Serious: Yes (Death)
  Sender: FDA-Public Use
  Company Number: US-ASTELLAS-2011US002873

PATIENT
  Age: 76 Year
  Sex: Male
  Weight: 97 kg

DRUGS (3)
  1. SORAFENIB [Suspect]
     Dosage: 400 MG, BID
     Route: 048
     Dates: end: 20110506
  2. ERLOTINIB HYDROCHLORIDE [Suspect]
     Indication: GALLBLADDER CANCER
     Dosage: 100 MG, UID/QD
     Route: 048
     Dates: start: 20100310, end: 20110506
  3. SORAFENIB [Suspect]
     Indication: GALLBLADDER CANCER
     Dosage: 400 MG, BID
     Route: 048
     Dates: start: 20100310

REACTIONS (3)
  - DEATH [None]
  - DIARRHOEA [None]
  - ABDOMINAL PAIN [None]
